FAERS Safety Report 4797797-8 (Version None)
Quarter: 2005Q3

REPORT INFORMATION
  Report Type: 
  Country: None (occurrence: None)
  Receive Date: 20050929
  Receipt Date: 20050628
  Transmission Date: 20060218
  Serious: No
  Sender: FDA-Public Use
  Company Number: 05P-163-0304402-00

PATIENT
  Age: 73 Year
  Sex: Female
  Weight: 81.6475 kg

DRUGS (11)
  1. HUMIRA [Suspect]
     Indication: RHEUMATOID ARTHRITIS
     Dosage: 40 MG, 1 IN 2 WK, SUBCUTANEOUS
     Route: 058
     Dates: start: 20050628
  2. METHOTREXATE [Concomitant]
  3. PREDNISONE [Concomitant]
  4. CELECOXIB [Concomitant]
  5. ESOMEPRAZOLE [Concomitant]
  6. FOLIC ACID [Concomitant]
  7. DARVOCET [Concomitant]
  8. ASCORBIC ACID [Concomitant]
  9. GLUCOSAMINE CONDROITIN [Concomitant]
  10. CYCLOBENZAPRINE HCL [Concomitant]
  11. AMBIEN [Concomitant]

REACTIONS (2)
  - DRUG ADMINISTRATION ERROR [None]
  - INJECTION SITE IRRITATION [None]
